FAERS Safety Report 9696284 (Version 2)
Quarter: 2014Q1

REPORT INFORMATION
  Report Type: Spontaneous
  Country: AU (occurrence: None)
  Receive Date: 20131115
  Receipt Date: 20140220
  Transmission Date: 20141002
  Serious: Yes (Hospitalization, Other)
  Sender: FDA-Public Use
  Company Number: ADR-2013-02079

PATIENT
  Sex: Male

DRUGS (1)
  1. BACLOFEN [Suspect]
     Dosage: DAY FLEX DOSE

REACTIONS (4)
  - Somnolence [None]
  - Dystonia [None]
  - Respiratory failure [None]
  - Device infusion issue [None]
